FAERS Safety Report 9838423 (Version 1)
Quarter: 2014Q1

REPORT INFORMATION
  Report Type: Spontaneous
  Country: US (occurrence: US)
  Receive Date: 20140123
  Receipt Date: 20140123
  Transmission Date: 20141002
  Serious: Yes (Hospitalization, Other)
  Sender: FDA-Public Use
  Company Number: US-TEVA-457905USA

PATIENT
  Age: 78 Year
  Sex: Male

DRUGS (2)
  1. WARFARIN [Suspect]
     Route: 065
  2. ASPIRIN [Concomitant]
     Route: 065

REACTIONS (2)
  - Muscle haemorrhage [Recovering/Resolving]
  - Shock haemorrhagic [Recovering/Resolving]
